FAERS Safety Report 8020190-1 (Version None)
Quarter: 2012Q1

REPORT INFORMATION
  Report Type: 
  Country: None (occurrence: None)
  Receive Date: 20120103
  Receipt Date: 20111219
  Transmission Date: 20120608
  Serious: Yes (Other)
  Sender: FDA-Public Use
  Company Number: TR-ROCHE-1024281

PATIENT
  Age: 6 Year
  Sex: Male

DRUGS (2)
  1. ZINC SULFATE [Suspect]
     Indication: HEPATITIS B
     Dosage: 1 HOUR BEFORE OR 2 TO 3 HOURS AFTER FOOD OR BEVERAGES
     Route: 048
  2. PEGINTERFERON ALFA-2A [Suspect]
     Indication: HEPATITIS B
     Dosage: 9 MEGAUNITS/M^2.
     Route: 058

REACTIONS (1)
  - CONVULSION [None]
